FAERS Safety Report 13909983 (Version 1)
Quarter: 2017Q3

REPORT INFORMATION
  Report Type: Spontaneous
  Country: US (occurrence: US)
  Receive Date: 20170828
  Receipt Date: 20170828
  Transmission Date: 20171127
  Serious: Yes (Other)
  Sender: FDA-Public Use
  Company Number: US-SA-2017SA148716

PATIENT
  Sex: Female

DRUGS (3)
  1. RABAVERT [Suspect]
     Active Substance: RABIES VIRUS STRAIN FLURY LEP ANTIGEN (PROPIOLACTONE INACTIVATED)
     Indication: PRODUCT USED FOR UNKNOWN INDICATION
     Route: 030
     Dates: start: 20170804, end: 20170804
  2. RABIES VACCINE [Suspect]
     Active Substance: RABIES VACCINE
     Indication: PRODUCT USED FOR UNKNOWN INDICATION
     Route: 030
     Dates: start: 20170808, end: 20170808
  3. HUMAN RABIES IMMUNOGLOBULIN [Suspect]
     Active Substance: RABIES IMMUNE GLOBULIN (HUMAN)
     Indication: IMMUNISATION
     Route: 030
     Dates: start: 20170804, end: 20170804

REACTIONS (6)
  - Blindness transient [Recovered/Resolved]
  - Eye pain [Unknown]
  - Headache [Unknown]
  - Pyrexia [Unknown]
  - Dehydration [Unknown]
  - Muscular weakness [Unknown]

NARRATIVE: CASE EVENT DATE: 20170809
